FAERS Safety Report 9208879 (Version 1)
Quarter: 2013Q2

REPORT INFORMATION
  Report Type: Spontaneous
  Country: CA (occurrence: CA)
  Receive Date: 20130404
  Receipt Date: 20130404
  Transmission Date: 20140414
  Serious: Yes (Hospitalization)
  Sender: FDA-Public Use
  Company Number: CA-AMGEN-CANSP2013022135

PATIENT
  Age: 86 Year
  Sex: Female
  Weight: 54.55 kg

DRUGS (1)
  1. PROLIA [Suspect]
     Indication: OSTEOPOROSIS POSTMENOPAUSAL
     Dosage: UNK
     Dates: start: 20120926

REACTIONS (3)
  - Cerebrovascular accident [Recovering/Resolving]
  - Amnesia [Recovering/Resolving]
  - Haemoglobin decreased [Recovering/Resolving]
